FAERS Safety Report 6491898-4 (Version None)
Quarter: 2009Q4

REPORT INFORMATION
  Report Type: 
  Country: None (occurrence: None)
  Receive Date: 20091208
  Receipt Date: 20091124
  Transmission Date: 20100525
  Serious: Yes (Hospitalization)
  Sender: FDA-Public Use
  Company Number: 002563

PATIENT
  Age: 82 Year
  Sex: Male
  Weight: 75 kg

DRUGS (11)
  1. BICALUTAMIDE [Suspect]
     Indication: OBESITY
     Dosage: (80 MG QD)
  2. BICALUTAMIDE [Suspect]
     Indication: PROSTATE CANCER
     Dosage: (80 MG QD)
  3. DISOPYRAMIDE [Suspect]
     Indication: ARRHYTHMIA
     Dosage: (300 MG (FREQUENCY NOT REPORTED))
  4. GARENOXACIN MESYLATE [Suspect]
     Indication: PNEUMONIA BACTERIAL
     Dosage: (800 MG DAILY (TWICE) ORAL)
     Route: 048
  5. LICORICE /01125801/ (KANZOU (LICORICE)) [Suspect]
     Indication: ASTHMA
     Dosage: (TOTAL OF .78 G/DAY (.44 G/DAY IN 9.0 G/DAY OF BAKUMONDOTO + .34G/DAY IN 9 G/DAY OF BOFUTUSYOSAN))
  6. (UNKNOWN (SILODOSIN) [Suspect]
     Indication: BENIGN PROSTATIC HYPERPLASIA
     Dosage: (8MG)
  7. IMIDAPRIL HYDROCHLORIDE [Concomitant]
  8. AMLODIPINE BESYLATE [Concomitant]
  9. ISOSORBIDE MONONITRATE [Concomitant]
  10. PRAVASTATIN SODIUM [Concomitant]
  11. FLUTOPRAZEPAM [Concomitant]

REACTIONS (10)
  - BLOOD PH INCREASED [None]
  - COUGH [None]
  - DYSPNOEA [None]
  - ELECTROCARDIOGRAM QT PROLONGED [None]
  - ELECTROCARDIOGRAM T WAVE AMPLITUDE DECREASED [None]
  - HYPOKALAEMIA [None]
  - LOSS OF CONSCIOUSNESS [None]
  - PNEUMONIA BACTERIAL [None]
  - SPEECH DISORDER [None]
  - TORSADE DE POINTES [None]
